FAERS Safety Report 11009294 (Version 1)
Quarter: 2015Q2

REPORT INFORMATION
  Report Type: Spontaneous
  Country: US (occurrence: None)
  Receive Date: 20150409
  Receipt Date: 20150409
  Transmission Date: 20150821
  Serious: Yes (Hospitalization)
  Sender: FDA-Public Use
  Company Number: None

PATIENT
  Age: 66 Year
  Sex: Male

DRUGS (2)
  1. PROPOFOL. [Suspect]
     Active Substance: PROPOFOL
     Indication: COLONOSCOPY
     Dates: start: 20150407
  2. PROPOFOL. [Suspect]
     Active Substance: PROPOFOL
     Dates: start: 20150407

REACTIONS (15)
  - Pyrexia [None]
  - Blood pressure decreased [None]
  - Mental status changes [None]
  - Depressed level of consciousness [None]
  - Bacterial infection [None]
  - Swollen tongue [None]
  - Aspiration [None]
  - Disorientation [None]
  - Swelling face [None]
  - Chills [None]
  - Atelectasis [None]
  - Tremor [None]
  - Lethargy [None]
  - Tachycardia [None]
  - Oxygen saturation decreased [None]

NARRATIVE: CASE EVENT DATE: 20150407
